FAERS Safety Report 6152600-9 (Version None)
Quarter: 2009Q2

REPORT INFORMATION
  Report Type: 
  Country: None (occurrence: None)
  Receive Date: 20090413
  Receipt Date: 20090331
  Transmission Date: 20091009
  Serious: Yes (Hospitalization, Other)
  Sender: FDA-Public Use
  Company Number: US-ELI_LILLY_AND_COMPANY-US200903000459

PATIENT
  Sex: Female

DRUGS (2)
  1. CYMBALTA [Suspect]
     Indication: MAJOR DEPRESSION
     Dosage: 1 D/F, UNK
  2. PAXIL [Concomitant]

REACTIONS (4)
  - FOAMING AT MOUTH [None]
  - HOSPITALISATION [None]
  - ORAL MUCOSAL EXFOLIATION [None]
  - STEVENS-JOHNSON SYNDROME [None]
